FAERS Safety Report 14322010 (Version 6)
Quarter: 2019Q3

REPORT INFORMATION
  Report Type: Spontaneous
  Country: JP (occurrence: JP)
  Receive Date: 20171225
  Receipt Date: 20190821
  Transmission Date: 20191004
  Serious: Yes (Other)
  Sender: FDA-Public Use
  Company Number: JP-ROCHE-2044475

PATIENT
  Age: 52 Year
  Sex: Female
  Weight: 65 kg

DRUGS (4)
  1. AVASTIN [Suspect]
     Active Substance: BEVACIZUMAB
     Indication: BREAST CANCER
     Route: 041
     Dates: start: 20170807, end: 20170912
  2. AVASTIN [Suspect]
     Active Substance: BEVACIZUMAB
     Indication: BREAST CANCER
     Route: 041
     Dates: start: 20160627, end: 20170410
  3. PACLITAXEL. [Suspect]
     Active Substance: PACLITAXEL
     Indication: BREAST CANCER
     Route: 041
     Dates: start: 20170912
  4. PACLITAXEL. [Suspect]
     Active Substance: PACLITAXEL
     Indication: BREAST CANCER
     Route: 041
     Dates: start: 20160627

REACTIONS (7)
  - Pancreatic pseudocyst [Unknown]
  - Pancreatitis [Recovered/Resolved]
  - Neuropathy peripheral [Unknown]
  - Pancreatic pseudoaneurysm [Unknown]
  - Pancreatic haemorrhage [Unknown]
  - Cyst rupture [Unknown]
  - Metastases to pancreas [Unknown]

NARRATIVE: CASE EVENT DATE: 2017
